FAERS Safety Report 24362184 (Version 1)
Quarter: 2024Q3

REPORT INFORMATION
  Report Type: Spontaneous
  Country: US (occurrence: None)
  Receive Date: 20240924
  Receipt Date: 20240924
  Transmission Date: 20241017
  Serious: Yes (Death, Life-Threatening, Hospitalization)
  Sender: Public
  Company Number: None

PATIENT
  Age: 65 Year
  Sex: Male
  Weight: 175.8 kg

DRUGS (2)
  1. OZEMPIC [Suspect]
     Active Substance: SEMAGLUTIDE
     Dates: start: 20240907
  2. TRULICITY [Concomitant]
     Active Substance: DULAGLUTIDE
     Dates: start: 20240907

REACTIONS (9)
  - Lipase increased [None]
  - Abdominal pain [None]
  - Acute kidney injury [None]
  - Pancreatitis necrotising [None]
  - Intestinal perforation [None]
  - Anisocoria [None]
  - Acute respiratory failure [None]
  - Shock [None]
  - Treatment failure [None]

NARRATIVE: CASE EVENT DATE: 20240912
